FAERS Safety Report 15739830 (Version 2)
Quarter: 2018Q4

REPORT INFORMATION
  Report Type: Spontaneous
  Country: US (occurrence: US)
  Receive Date: 20181219
  Receipt Date: 20181226
  Transmission Date: 20190205
  Serious: Yes (Other)
  Sender: FDA-Public Use
  Company Number: US-PFIZER INC-2018516241

PATIENT
  Age: 55 Year
  Sex: Female
  Weight: 86 kg

DRUGS (3)
  1. ASPIRIN (E.C.) [Concomitant]
     Active Substance: ASPIRIN
     Dosage: UNK UNK, 1X/DAY (NORMALLY IN MORNING A LOWDOSE)
  2. FLECTOR [Suspect]
     Active Substance: DICLOFENAC EPOLAMINE
     Indication: PAIN OF SKIN
     Dosage: PORTION OF ONE PATCH
     Route: 061
     Dates: start: 20181210, end: 20181211
  3. DICLOFENAC [Concomitant]
     Active Substance: DICLOFENAC
     Indication: CEREBRAL PALSY
     Dosage: WITH EVENING MEAL

REACTIONS (4)
  - Intentional product misuse [Unknown]
  - Blood glucose increased [Not Recovered/Not Resolved]
  - Contraindicated product prescribed [Unknown]
  - Concomitant disease aggravated [Not Recovered/Not Resolved]

NARRATIVE: CASE EVENT DATE: 20181210
